FAERS Safety Report 8078491-7 (Version None)
Quarter: 2012Q1

REPORT INFORMATION
  Report Type: 
  Country: None (occurrence: None)
  Receive Date: 20120127
  Receipt Date: 20110329
  Transmission Date: 20120608
  Serious: No
  Sender: FDA-Public Use
  Company Number: PR-ABBOTT-11P-131-0708131-00

PATIENT
  Sex: Female

DRUGS (8)
  1. PERCOCET [Concomitant]
     Indication: PAIN
     Dosage: 5/325 MG PRN
     Route: 048
  2. ATENOLOL [Concomitant]
     Indication: HYPERTENSION
     Dosage: 50MG AS INDICATED
     Route: 048
  3. LOSARTAN POTASSIUM [Concomitant]
     Indication: HYPERTENSION
     Dosage: 50MG AS INDICATED
     Route: 048
  4. HUMIRA [Suspect]
     Indication: PSORIATIC ARTHROPATHY
     Route: 058
     Dates: start: 20110101
  5. ALEEVE [Concomitant]
     Indication: PAIN
     Dosage: PRN
  6. METHOTREXATE [Concomitant]
     Indication: RHEUMATOID ARTHRITIS
     Dosage: 0.1ML WEEKLY
     Route: 030
  7. VERAPAMIL [Concomitant]
     Indication: HYPERTENSION
     Dosage: 240MG AS INDICATED
     Route: 048
  8. FOLIC ACID [Concomitant]
     Indication: VITAMIN SUPPLEMENTATION
     Dosage: 1MG AS INDICATED
     Route: 048

REACTIONS (4)
  - PSORIATIC ARTHROPATHY [None]
  - SKIN LESION [None]
  - DRUG INEFFECTIVE [None]
  - DECREASED APPETITE [None]
